FAERS Safety Report 7912917-1 (Version None)
Quarter: 2011Q4

REPORT INFORMATION
  Report Type: 
  Country: None (occurrence: None)
  Receive Date: 20111114
  Receipt Date: 20111102
  Transmission Date: 20120403
  Serious: Yes (Other)
  Sender: FDA-Public Use
  Company Number: VE-ROCHE-1010829

PATIENT
  Sex: Male

DRUGS (8)
  1. CALCIUM CARBONATE [Concomitant]
  2. XOLAIR [Suspect]
     Indication: PRODUCT USED FOR UNKNOWN INDICATION
     Dates: start: 20110901, end: 20111001
  3. FUROSEMIDE [Concomitant]
  4. PROTEIN SUPPLEMENT [Concomitant]
  5. L-CARNITINE [Concomitant]
  6. FOLIC ACID [Concomitant]
  7. DIOVAN [Concomitant]
  8. ASCORBIC ACID [Concomitant]

REACTIONS (4)
  - PNEUMONIA [None]
  - RENAL DISORDER [None]
  - HAEMOGLOBIN DECREASED [None]
  - CEREBROVASCULAR ACCIDENT [None]
